FAERS Safety Report 5490759-7 (Version None)
Quarter: 2007Q4

REPORT INFORMATION
  Report Type: 
  Country: None (occurrence: None)
  Receive Date: 20071019
  Receipt Date: 20071015
  Transmission Date: 20080405
  Serious: Yes (Other)
  Sender: FDA-Public Use
  Company Number: JP-WYE-H00667407

PATIENT
  Age: 58 Year
  Sex: Female

DRUGS (3)
  1. RHEUMATREX [Suspect]
     Route: 048
     Dates: start: 20060825, end: 20060903
  2. RHEUMATREX [Suspect]
     Dates: start: 20060904, end: 20061006
  3. OSTELUC [Suspect]
     Route: 048
     Dates: start: 20060818, end: 20060922

REACTIONS (1)
  - INTERSTITIAL LUNG DISEASE [None]
